FAERS Safety Report 7187171-1 (Version None)
Quarter: 2010Q4

REPORT INFORMATION
  Report Type: 
  Country: None (occurrence: None)
  Receive Date: 20101222
  Receipt Date: 20101217
  Transmission Date: 20110411
  Serious: Yes (Hospitalization)
  Sender: FDA-Public Use
  Company Number: US-PFIZER INC-2010175874

PATIENT
  Sex: Male

DRUGS (20)
  1. ARGATROBAN [Suspect]
     Indication: HEPARIN-INDUCED THROMBOCYTOPENIA
     Dosage: 0.7MCG/KG/MIN
     Route: 042
     Dates: start: 20101210, end: 20101215
  2. ACETAMINOPHEN [Concomitant]
  3. COLACE [Concomitant]
  4. SYNTHROID [Concomitant]
  5. ATROVENT [Concomitant]
  6. ZOCOR [Concomitant]
  7. VERAPAMIL [Concomitant]
  8. PULMICORT [Concomitant]
  9. OXYCODONE [Concomitant]
  10. PROTONIX [Concomitant]
  11. FLOMAX [Concomitant]
  12. ZOPINOX [Concomitant]
  13. ZOFRAN [Concomitant]
  14. XANAX [Concomitant]
  15. LIDOCAINE [Concomitant]
  16. DIGOXIN [Concomitant]
  17. SERTRALINE [Concomitant]
  18. SENNA [Concomitant]
  19. PREDNISONE [Concomitant]
  20. CLONAZEPAM [Concomitant]

REACTIONS (1)
  - THROMBOCYTOPENIA [None]
